FAERS Safety Report 16897876 (Version 1)
Quarter: 2019Q4

REPORT INFORMATION
  Report Type: Other
  Country: IT (occurrence: IT)
  Receive Date: 20191009
  Receipt Date: 20191009
  Transmission Date: 20200122
  Serious: Yes (Hospitalization, Other)
  Sender: FDA-Public Use
  Company Number: IT-APOTEX-2019AP023264

PATIENT
  Age: 25 Year
  Sex: Female

DRUGS (1)
  1. PAROXETINE. [Suspect]
     Active Substance: PAROXETINE
     Indication: PRODUCT USED FOR UNKNOWN INDICATION
     Dosage: 900 MG, SINGLE
     Route: 048

REACTIONS (3)
  - Substance abuse [Unknown]
  - Sinus tachycardia [Unknown]
  - Agitation [Unknown]

NARRATIVE: CASE EVENT DATE: 20190330
